FAERS Safety Report 4360729-0 (Version None)
Quarter: 2004Q2

REPORT INFORMATION
  Report Type: 
  Country: None (occurrence: None)
  Receive Date: 20040514
  Receipt Date: 20040505
  Transmission Date: 20050107
  Serious: Yes (Hospitalization)
  Sender: FDA-Public Use
  Company Number: HQWYE581223APR04

PATIENT
  Age: 88 Year
  Sex: Female

DRUGS (6)
  1. CORDARONE [Suspect]
     Indication: ATRIAL FIBRILLATION
     Dosage: SEE IMAGE
     Route: 048
     Dates: start: 20040306, end: 20040314
  2. CORDARONE [Suspect]
     Indication: ATRIAL FIBRILLATION
     Dosage: SEE IMAGE
     Route: 048
     Dates: start: 20040315
  3. MEMANTINE HCL [Concomitant]
  4. COAPROVEL (IRBESARTAN/HYDROCHLOROTHIAZIDE) [Concomitant]
  5. LIORESAL [Concomitant]
  6. PREVISCAN [Suspect]
     Indication: ATRIAL FLUTTER
     Dosage: 5 MG 1X PER 1 DAY
     Route: 048
     Dates: start: 20040219, end: 20040308

REACTIONS (4)
  - ANAEMIA [None]
  - DRUG INTERACTION [None]
  - HAEMATOMA [None]
  - INTERNATIONAL NORMALISED RATIO INCREASED [None]
